FAERS Safety Report 5638141-3 (Version None)
Quarter: 2008Q1

REPORT INFORMATION
  Report Type: 
  Country: None (occurrence: None)
  Receive Date: 20080221
  Receipt Date: 20080204
  Transmission Date: 20080703
  Serious: Yes (Hospitalization)
  Sender: FDA-Public Use
  Company Number: US022573

PATIENT
  Age: 69 Year
  Sex: Female

DRUGS (1)
  1. ARSENIC TRIOXIDE [Suspect]
     Indication: MYELODYSPLASTIC SYNDROME
     Dosage: 0.25 MG/KG TWICE WEEKLY INTRAVENOUS
     Route: 042
     Dates: start: 20080107, end: 20080111

REACTIONS (1)
  - LOBAR PNEUMONIA [None]
